FAERS Safety Report 26174845 (Version 1)
Quarter: 2025Q4

REPORT INFORMATION
  Report Type: Spontaneous
  Country: CA (occurrence: CA)
  Receive Date: 20251218
  Receipt Date: 20251218
  Transmission Date: 20260117
  Serious: Yes (Other)
  Sender: TEVA
  Company Number: CA-TEVA-VS-3403709

PATIENT
  Age: 52 Year
  Sex: Female

DRUGS (42)
  1. PROPRANOLOL [Suspect]
     Active Substance: PROPRANOLOL HYDROCHLORIDE
     Indication: Tremor
     Route: 048
  2. PROPRANOLOL HYDROCHLORIDE [Suspect]
     Active Substance: PROPRANOLOL HYDROCHLORIDE
     Indication: Tremor
     Route: 048
  3. PROPRANOLOL HYDROCHLORIDE [Suspect]
     Active Substance: PROPRANOLOL HYDROCHLORIDE
     Indication: Tremor
     Route: 048
  4. CARBAMAZEPINE [Concomitant]
     Active Substance: CARBAMAZEPINE
     Indication: Product used for unknown indication
     Route: 065
  5. SERTRALINE [Suspect]
     Active Substance: SERTRALINE HYDROCHLORIDE
     Indication: Product used for unknown indication
     Route: 065
  6. COLACE [Concomitant]
     Active Substance: DOCUSATE SODIUM
     Indication: Product used for unknown indication
     Route: 065
  7. COLACE [Concomitant]
     Active Substance: DOCUSATE SODIUM
     Indication: Product used for unknown indication
     Route: 065
  8. POLYETHYLENE GLYCOL 3350\POTASSIUM CHLORIDE\SODIUM BICARBONATE\SODIUM [Concomitant]
     Active Substance: POLYETHYLENE GLYCOL 3350\POTASSIUM CHLORIDE\SODIUM BICARBONATE\SODIUM CHLORIDE
     Indication: Constipation
     Route: 065
  9. PEGVISOMANT [Concomitant]
     Active Substance: PEGVISOMANT
     Indication: Product used for unknown indication
     Route: 065
  10. RISPERIDONE [Suspect]
     Active Substance: RISPERIDONE
     Indication: Product used for unknown indication
     Route: 065
  11. MELATONIN [Concomitant]
     Active Substance: MELATONIN
     Indication: Product used for unknown indication
     Route: 065
  12. METRONIDAZOLE [Suspect]
     Active Substance: METRONIDAZOLE
     Indication: Product used for unknown indication
     Route: 065
  13. STRATTERA [Concomitant]
     Active Substance: ATOMOXETINE HYDROCHLORIDE
     Indication: Product used for unknown indication
     Route: 065
  14. PRIMOVIST [Suspect]
     Active Substance: GADOXETATE DISODIUM
     Indication: Product used for unknown indication
     Route: 065
  15. PRIMOVIST [Suspect]
     Active Substance: GADOXETATE DISODIUM
     Indication: Product used for unknown indication
     Dosage: DOSE FORM:SOLUTION INTRAVENOUS
     Route: 042
  16. CORTEF [Concomitant]
     Active Substance: HYDROCORTISONE
     Indication: Product used for unknown indication
     Route: 065
  17. SYNTHROID [Concomitant]
     Active Substance: LEVOTHYROXINE SODIUM
     Indication: Product used for unknown indication
     Route: 065
  18. TESTOSTERONE [Concomitant]
     Active Substance: TESTOSTERONE
     Indication: Product used for unknown indication
     Route: 065
  19. ATOMOXETINE [Concomitant]
     Active Substance: ATOMOXETINE
     Indication: Product used for unknown indication
     Route: 065
  20. OCTREOTIDE [Suspect]
     Active Substance: OCTREOTIDE
     Indication: Growth hormone-producing pituitary tumour
     Route: 058
  21. OCTREOTIDE [Suspect]
     Active Substance: OCTREOTIDE
     Indication: Growth hormone-producing pituitary tumour
     Route: 030
  22. OCTREOTIDE [Suspect]
     Active Substance: OCTREOTIDE
     Indication: Growth hormone-producing pituitary tumour
     Route: 058
  23. OCTREOTIDE [Suspect]
     Active Substance: OCTREOTIDE
     Indication: Growth hormone-producing pituitary tumour
     Route: 058
  24. OCTREOTIDE [Suspect]
     Active Substance: OCTREOTIDE
     Indication: Growth hormone-producing pituitary tumour
     Route: 058
  25. OCTREOTIDE [Suspect]
     Active Substance: OCTREOTIDE
     Indication: Growth hormone-producing pituitary tumour
     Route: 058
  26. OCTREOTIDE [Suspect]
     Active Substance: OCTREOTIDE
     Indication: Growth hormone-producing pituitary tumour
     Route: 058
  27. OCTREOTIDE [Suspect]
     Active Substance: OCTREOTIDE
     Indication: Growth hormone-producing pituitary tumour
     Route: 058
  28. OCTREOTIDE [Suspect]
     Active Substance: OCTREOTIDE
     Indication: Growth hormone-producing pituitary tumour
     Route: 058
  29. OCTREOTIDE [Suspect]
     Active Substance: OCTREOTIDE
     Indication: Growth hormone-producing pituitary tumour
     Route: 065
  30. OCTREOTIDE [Suspect]
     Active Substance: OCTREOTIDE
     Indication: Growth hormone-producing pituitary tumour
     Route: 065
  31. OCTREOTIDE [Suspect]
     Active Substance: OCTREOTIDE
     Indication: Growth hormone-producing pituitary tumour
     Route: 065
  32. OCTREOTIDE [Suspect]
     Active Substance: OCTREOTIDE
     Indication: Growth hormone-producing pituitary tumour
     Route: 030
  33. OCTREOTIDE [Suspect]
     Active Substance: OCTREOTIDE
     Indication: Growth hormone-producing pituitary tumour
     Route: 030
  34. OCTREOTIDE [Suspect]
     Active Substance: OCTREOTIDE
     Indication: Growth hormone-producing pituitary tumour
     Route: 065
  35. OCTREOTIDE [Suspect]
     Active Substance: OCTREOTIDE
     Indication: Growth hormone-producing pituitary tumour
     Route: 030
  36. OCTREOTIDE [Suspect]
     Active Substance: OCTREOTIDE
     Indication: Growth hormone-producing pituitary tumour
     Route: 030
  37. SOMAVERT [Suspect]
     Active Substance: PEGVISOMANT
     Indication: Pituitary tumour
     Dosage: DOSE FORM:POWDER FOR SOLUTION SUBCUTANEOUS
     Route: 065
  38. SOMAVERT [Suspect]
     Active Substance: PEGVISOMANT
     Indication: Pituitary tumour
     Route: 065
  39. CORTISONE [Concomitant]
     Active Substance: CORTISONE
     Indication: Product used for unknown indication
     Route: 065
  40. PRIMIDONE [Suspect]
     Active Substance: PRIMIDONE
     Indication: Product used for unknown indication
     Route: 065
  41. PRIMIDONE [Suspect]
     Active Substance: PRIMIDONE
     Indication: Product used for unknown indication
     Route: 065
  42. CIPROFLOXACIN [Suspect]
     Active Substance: CIPROFLOXACIN
     Indication: Product used for unknown indication
     Route: 065

REACTIONS (25)
  - Haemorrhage [Recovered/Resolved]
  - Inappropriate schedule of product administration [Recovered/Resolved]
  - Heart rate decreased [Recovered/Resolved]
  - Injection site haemorrhage [Recovered/Resolved]
  - Injection site swelling [Recovered/Resolved]
  - Nasopharyngitis [Recovered/Resolved]
  - Injection site pain [Recovered/Resolved]
  - Fatigue [Recovered/Resolved]
  - Needle issue [Recovered/Resolved]
  - Drug hypersensitivity [Recovered/Resolved]
  - Abdominal distension [Recovered/Resolved]
  - Hypotension [Recovered/Resolved]
  - Bone pain [Recovered/Resolved]
  - Cough [Recovered/Resolved]
  - Contusion [Recovered/Resolved]
  - Frustration tolerance decreased [Recovered/Resolved]
  - Limb discomfort [Recovered/Resolved]
  - Nasal congestion [Recovered/Resolved]
  - Rash papular [Recovered/Resolved]
  - Epistaxis [Recovered/Resolved]
  - Blood pressure increased [Recovered/Resolved]
  - Abdominal pain [Recovered/Resolved]
  - Rubber sensitivity [Recovered/Resolved]
  - Anxiety [Recovered/Resolved]
  - Back pain [Recovered/Resolved]
